FAERS Safety Report 8375981-4 (Version None)
Quarter: 2012Q2

REPORT INFORMATION
  Report Type: 
  Country: None (occurrence: None)
  Receive Date: 20120522
  Receipt Date: 20111116
  Transmission Date: 20120825
  Serious: Yes (Hospitalization, Other)
  Sender: FDA-Public Use
  Company Number: ES-ROXANE LABORATORIES, INC.-2011-EU-00155GD

PATIENT
  Age: 63 Year
  Sex: Male

DRUGS (9)
  1. PREDNISONE [Suspect]
     Indication: AUTOIMMUNE HEPATITIS
     Dosage: 60 MG
  2. PREDNISONE [Suspect]
     Indication: OVERLAP SYNDROME
  3. TACROLIMUS [Concomitant]
     Indication: AUTOIMMUNE HEPATITIS
     Dosage: 9 MG
  4. TACROLIMUS [Concomitant]
     Indication: BILIARY CIRRHOSIS PRIMARY
  5. TACROLIMUS [Concomitant]
     Indication: OVERLAP SYNDROME
  6. AZATHIOPRINE [Concomitant]
     Indication: AUTOIMMUNE HEPATITIS
     Dosage: 100 MG
  7. AZATHIOPRINE [Concomitant]
     Indication: BILIARY CIRRHOSIS PRIMARY
  8. PREDNISONE [Suspect]
     Indication: BILIARY CIRRHOSIS PRIMARY
  9. AZATHIOPRINE [Concomitant]
     Indication: OVERLAP SYNDROME

REACTIONS (3)
  - DYSPNOEA EXERTIONAL [None]
  - LIPOMATOSIS [None]
  - CUSHINGOID [None]
